FAERS Safety Report 10150982 (Version 1)
Quarter: 2014Q2

REPORT INFORMATION
  Report Type: Spontaneous
  Country: US (occurrence: US)
  Receive Date: 20140502
  Receipt Date: 20140502
  Transmission Date: 20141212
  Serious: Yes (Hospitalization)
  Sender: FDA-Public Use
  Company Number: US-PFIZER INC-2014117546

PATIENT
  Age: 74 Year
  Sex: Female

DRUGS (1)
  1. LINCOMYCIN HCL [Suspect]
     Indication: WOUND INFECTION
     Dosage: 600 MG, DAILY
     Route: 030

REACTIONS (5)
  - Functional gastrointestinal disorder [Recovered/Resolved]
  - Diarrhoea [Recovered/Resolved]
  - Pyrexia [Recovered/Resolved]
  - Decreased appetite [Recovered/Resolved]
  - Abdominal pain [Recovered/Resolved]
